FAERS Safety Report 12699591 (Version 1)
Quarter: 2016Q3

REPORT INFORMATION
  Report Type: Other
  Country: US (occurrence: US)
  Receive Date: 20160830
  Receipt Date: 20160830
  Transmission Date: 20161109
  Serious: Yes (Other)
  Sender: FDA-Public Use
  Company Number: US-COL_23699_2016

PATIENT
  Age: 39 Year
  Sex: Female

DRUGS (1)
  1. LADY SPEED STICK INVISIBLE DRY POWER WILD FREESIA [Suspect]
     Active Substance: ALUMINUM ZIRCONIUM TETRACHLOROHYDREX GLY
     Indication: PRODUCT USED FOR UNKNOWN INDICATION
     Dosage: 3 SWIPES UNDER EACH BREAST/ONCE/
     Route: 061
     Dates: start: 20160818, end: 20160818

REACTIONS (7)
  - Seizure [Recovered/Resolved]
  - Product use issue [Recovered/Resolved]
  - Nervousness [Recovered/Resolved]
  - Asthenia [Recovered/Resolved]
  - Dysarthria [Recovered/Resolved]
  - Abnormal faeces [Recovered/Resolved]
  - Muscle twitching [Recovered/Resolved]

NARRATIVE: CASE EVENT DATE: 20160818
